FAERS Safety Report 13718271 (Version 1)
Quarter: 2017Q3

REPORT INFORMATION
  Report Type: Spontaneous
  Country: DK (occurrence: DK)
  Receive Date: 20170705
  Receipt Date: 20170705
  Transmission Date: 20171127
  Serious: Yes (Other)
  Sender: FDA-Public Use
  Company Number: DK-LUNDBECK-DKLU2033614

PATIENT
  Sex: Female

DRUGS (3)
  1. SABRILEX [Suspect]
     Active Substance: VIGABATRIN
     Indication: EPILEPSY
     Route: 048
     Dates: start: 1985
  2. CARBAMAZEPINE. [Concomitant]
     Active Substance: CARBAMAZEPINE
     Indication: EPILEPSY
     Route: 065
     Dates: start: 2010
  3. SABRILEX [Suspect]
     Active Substance: VIGABATRIN
     Route: 048
     Dates: start: 2003, end: 201508

REACTIONS (1)
  - Eye injury [Unknown]
